FAERS Safety Report 8593555-7 (Version None)
Quarter: 2012Q3

REPORT INFORMATION
  Report Type: 
  Country: None (occurrence: None)
  Receive Date: 20120814
  Receipt Date: 20120806
  Transmission Date: 20120928
  Serious: Yes (Hospitalization)
  Sender: FDA-Public Use
  Company Number: DE-JNJFOC-20120804366

PATIENT
  Age: 77 Year
  Sex: Male

DRUGS (3)
  1. REMICADE [Suspect]
     Indication: RHEUMATOID ARTHRITIS
     Route: 042
     Dates: start: 20040101, end: 20040301
  2. PREDNISOLONE [Concomitant]
     Route: 048
     Dates: start: 20071001
  3. ORENCIA [Concomitant]
     Route: 042
     Dates: start: 20080501, end: 20111121

REACTIONS (1)
  - RECTAL CANCER [None]
